FAERS Safety Report 5859848-9 (Version None)
Quarter: 2008Q3

REPORT INFORMATION
  Report Type: 
  Country: None (occurrence: None)
  Receive Date: 20080818
  Receipt Date: 20080708
  Transmission Date: 20090109
  Serious: No
  Sender: FDA-Public Use
  Company Number: WAES 0807USA01331

PATIENT
  Age: 79 Year
  Sex: Female

DRUGS (9)
  1. JANUVIA [Suspect]
     Indication: DIABETES MELLITUS
     Dosage: 100 MG/DAILY/PO
     Route: 048
     Dates: start: 20070901, end: 20080704
  2. COREG [Concomitant]
  3. LASIX [Concomitant]
  4. LIPITOR [Concomitant]
  5. MAVIK [Concomitant]
  6. SYNTHROID [Concomitant]
  7. ALLOPURINOL [Concomitant]
  8. GLIPIZIDE [Concomitant]
  9. HYDRALAZINE HCL [Concomitant]

REACTIONS (2)
  - COUGH [None]
  - DYSPNOEA [None]
